FAERS Safety Report 13443257 (Version 1)
Quarter: 2017Q2

REPORT INFORMATION
  Report Type: Spontaneous
  Country: JP (occurrence: JP)
  Receive Date: 20170414
  Receipt Date: 20170414
  Transmission Date: 20170830
  Serious: Yes (Hospitalization)
  Sender: FDA-Public Use
  Company Number: JP-MALLINCKRODT-T201701586

PATIENT
  Age: 55 Year
  Sex: Male
  Weight: 53 kg

DRUGS (25)
  1. METHADONE [Suspect]
     Active Substance: METHADONE HYDROCHLORIDE
     Dosage: 30 MG, 60 MG DAILY DOSE
     Route: 048
     Dates: start: 20160513, end: 20160517
  2. METHADONE [Suspect]
     Active Substance: METHADONE HYDROCHLORIDE
     Dosage: 40 MG, 80 MG DAILY DOSE
     Route: 048
     Dates: start: 20160518, end: 20160815
  3. DOCETAXEL. [Concomitant]
     Active Substance: DOCETAXEL
     Dosage: 90 MG
     Route: 051
     Dates: start: 20160531, end: 20160531
  4. LYRICA [Concomitant]
     Active Substance: PREGABALIN
     Indication: ANALGESIC THERAPY
     Dosage: 300 MG
     Route: 048
     Dates: end: 20160815
  5. METHADONE [Suspect]
     Active Substance: METHADONE HYDROCHLORIDE
     Indication: CANCER PAIN
     Dosage: 25 MG, 50 MG DAILY DOSE
     Route: 048
     Dates: start: 20160502, end: 20160512
  6. RISPERIDONE. [Concomitant]
     Active Substance: RISPERIDONE
     Dosage: 0.5 MG
     Route: 048
     Dates: end: 20160505
  7. MS CONTIN [Concomitant]
     Active Substance: MORPHINE SULFATE
     Indication: ANALGESIC THERAPY
     Dosage: 300 MG
     Route: 048
     Dates: end: 20160815
  8. SODIUM RABEPRAZOLE [Concomitant]
     Active Substance: RABEPRAZOLE SODIUM
     Dosage: 10 MG
     Route: 048
     Dates: start: 20160511, end: 20160519
  9. CALONAL [Concomitant]
     Active Substance: ACETAMINOPHEN
     Indication: ANALGESIC THERAPY
     Dosage: 4000 MG
     Route: 048
     Dates: end: 20160815
  10. CELECOX [Concomitant]
     Active Substance: CELECOXIB
     Indication: ANALGESIC THERAPY
     Dosage: 100 MG
     Route: 048
     Dates: end: 20160512
  11. OPSO [Concomitant]
     Active Substance: MORPHINE HYDROCHLORIDE
     Dosage: 60 MG, PRN
     Route: 048
  12. LOXOPROFEN NA [Concomitant]
     Active Substance: LOXOPROFEN SODIUM
     Indication: ANALGESIC THERAPY
     Dosage: 180 MG
     Route: 048
     Dates: start: 20160511, end: 20160815
  13. VONFENAC [Concomitant]
     Active Substance: DICLOFENAC SODIUM
     Dosage: 50 MG
     Route: 054
     Dates: start: 20160512, end: 20160801
  14. TAKECAB [Concomitant]
     Active Substance: VONOPRAZAN FUMURATE
     Dosage: 20 MG
     Route: 048
     Dates: start: 20160514, end: 20160815
  15. CYMBALTA [Concomitant]
     Active Substance: DULOXETINE HYDROCHLORIDE
     Indication: ANALGESIC THERAPY
     Dosage: 20 MG
     Route: 048
     Dates: start: 20160510, end: 20160815
  16. GRANISETRON [Concomitant]
     Active Substance: GRANISETRON
     Dosage: 1 MG
     Route: 051
     Dates: start: 20160531, end: 20160531
  17. FILGRASTIM [Concomitant]
     Active Substance: FILGRASTIM
     Dosage: 75 ?G
     Route: 051
     Dates: start: 20160516, end: 20160517
  18. G-LASTA [Concomitant]
     Active Substance: PEGFILGRASTIM
     Dosage: 3.6 MG
     Route: 051
     Dates: start: 20160602, end: 20160602
  19. DOCETAXEL. [Concomitant]
     Active Substance: DOCETAXEL
     Dosage: 95 MG
     Route: 051
     Dates: start: 20160510, end: 20160510
  20. BROTIZOLAM [Concomitant]
     Active Substance: BROTIZOLAM
     Dosage: 0.25 MG
     Route: 048
     Dates: end: 20160815
  21. REFLEX [Concomitant]
     Active Substance: MIRTAZAPINE
     Dosage: 15 MG
     Route: 048
     Dates: start: 20160509, end: 20160815
  22. GRANISETRON [Concomitant]
     Active Substance: GRANISETRON
     Dosage: 1 MG
     Route: 051
     Dates: start: 20160602, end: 20160605
  23. CONSTAN [Concomitant]
     Active Substance: ALPRAZOLAM
     Dosage: 0.4 MG
     Route: 048
     Dates: start: 20160513, end: 20160815
  24. LANSOPRAZOLE OD [Concomitant]
     Active Substance: LANSOPRAZOLE
     Dosage: 15 MG
     Route: 048
     Dates: end: 20160812
  25. GRANISETRON [Concomitant]
     Active Substance: GRANISETRON
     Dosage: 1 MG
     Route: 051
     Dates: start: 20160510, end: 20160510

REACTIONS (3)
  - Nausea [Recovering/Resolving]
  - Febrile neutropenia [Recovering/Resolving]
  - Constipation [Not Recovered/Not Resolved]

NARRATIVE: CASE EVENT DATE: 20160517
